FAERS Safety Report 12860369 (Version 2)
Quarter: 2016Q4

REPORT INFORMATION
  Report Type: Spontaneous
  Country: CA (occurrence: CA)
  Receive Date: 20161019
  Receipt Date: 20161027
  Transmission Date: 20170207
  Serious: Yes (Other)
  Sender: FDA-Public Use
  Company Number: CA-PFIZER INC-2016482217

PATIENT
  Age: 2 Year
  Sex: Male

DRUGS (5)
  1. CHILDRENS ADVIL [Suspect]
     Active Substance: IBUPROFEN
     Indication: PYREXIA
  2. CHILDRENS ADVIL [Suspect]
     Active Substance: IBUPROFEN
     Indication: VOMITING
  3. CHILDRENS ADVIL [Suspect]
     Active Substance: IBUPROFEN
     Indication: DYSPNOEA
  4. CHILDRENS ADVIL [Suspect]
     Active Substance: IBUPROFEN
     Indication: RHINOVIRUS INFECTION
     Dosage: UNK
     Dates: end: 201610
  5. CHILDRENS ADVIL [Suspect]
     Active Substance: IBUPROFEN
     Indication: MALAISE
     Dosage: RECOMMENDED DOSE
     Dates: start: 20161011

REACTIONS (4)
  - Seizure [Recovered/Resolved]
  - Product use issue [Unknown]
  - Poor quality drug administered [Unknown]
  - Product quality issue [Unknown]

NARRATIVE: CASE EVENT DATE: 20161011
